FAERS Safety Report 7628642-0 (Version None)
Quarter: 2011Q3

REPORT INFORMATION
  Report Type: 
  Country: None (occurrence: None)
  Receive Date: 20110711
  Receipt Date: 20110705
  Transmission Date: 20111222
  Serious: Yes (Other)
  Sender: FDA-Public Use
  Company Number: JHP200100055

PATIENT
  Age: 57 Year
  Sex: Female
  Weight: 72.6 kg

DRUGS (1)
  1. APLISOL [Suspect]
     Indication: TUBERCULIN TEST
     Dosage: 0.1 ML, SINGLE, INTRADERMAL
     Route: 023
     Dates: start: 20010207, end: 20010207

REACTIONS (36)
  - INCONTINENCE [None]
  - BALANCE DISORDER [None]
  - DRY SKIN [None]
  - HEADACHE [None]
  - CLONUS [None]
  - HYPOAESTHESIA [None]
  - INSOMNIA [None]
  - VISION BLURRED [None]
  - HYPERTENSION [None]
  - ARRHYTHMIA [None]
  - REFLEXES ABNORMAL [None]
  - TINNITUS [None]
  - BURNING SENSATION [None]
  - MUSCULOSKELETAL STIFFNESS [None]
  - DYSPNOEA [None]
  - SKIN DISORDER [None]
  - INCORRECT DOSE ADMINISTERED [None]
  - HEART RATE INCREASED [None]
  - LYMPHADENOPATHY [None]
  - TREMOR [None]
  - AMNESIA [None]
  - SKIN FRAGILITY [None]
  - INJECTION SITE DISCOLOURATION [None]
  - MUSCLE SPASMS [None]
  - COLD SWEAT [None]
  - ACTIVITIES OF DAILY LIVING IMPAIRED [None]
  - INJECTION SITE PAIN [None]
  - LYMPH NODE PAIN [None]
  - REFUSAL OF TREATMENT BY PATIENT [None]
  - FATIGUE [None]
  - ARTHRITIS [None]
  - PARAESTHESIA [None]
  - UNEVALUABLE EVENT [None]
  - ARTHROPATHY [None]
  - PARESIS [None]
  - EPISTAXIS [None]
